FAERS Safety Report 6155871-8 (Version None)
Quarter: 2009Q2

REPORT INFORMATION
  Report Type: 
  Country: None (occurrence: None)
  Receive Date: 20090415
  Receipt Date: 20090331
  Transmission Date: 20091009
  Serious: Yes (Hospitalization, Other)
  Sender: FDA-Public Use
  Company Number: SG-BAUSCH-2004BL005284

PATIENT
  Age: 25 Year
  Sex: Female

DRUGS (2)
  1. FLUOCINOLONE ACETONIDE [Suspect]
     Indication: UVEITIS
     Route: 047
     Dates: start: 20020625, end: 20050106
  2. PREDNISOLONE [Concomitant]
     Dates: start: 20040401

REACTIONS (1)
  - CORNEAL DECOMPENSATION [None]
